FAERS Safety Report 5233492-9 (Version None)
Quarter: 2007Q1

REPORT INFORMATION
  Report Type: 
  Country: None (occurrence: None)
  Receive Date: 20070208
  Receipt Date: 20070126
  Transmission Date: 20070707
  Serious: Yes (Death, Life-Threatening)
  Sender: FDA-Public Use
  Company Number: FR-BAYER-200710022BFR

PATIENT
  Age: 53 Year
  Sex: Male
  Weight: 50 kg

DRUGS (7)
  1. MOXIFLOXACIN HYDROCHLORIDE [Suspect]
     Indication: ASPERGILLOSIS
     Dosage: TOTAL DAILY DOSE: 400 MG  UNIT DOSE: 400 MG
     Route: 048
     Dates: start: 20061107, end: 20061201
  2. FLAGYL [Suspect]
     Indication: ASPERGILLOSIS
     Route: 048
     Dates: start: 20061107, end: 20061201
  3. VFEND [Suspect]
     Indication: ASPERGILLOSIS
     Dosage: UNIT DOSE: 200 MG
     Route: 048
     Dates: start: 20061113, end: 20061201
  4. XATRAL [Concomitant]
     Indication: UNEVALUABLE EVENT
     Route: 065
  5. NICOTINELL [Concomitant]
     Indication: UNEVALUABLE EVENT
     Route: 065
  6. MOTYLIO [Concomitant]
     Indication: UNEVALUABLE EVENT
     Route: 065
  7. XANAX [Concomitant]
     Indication: UNEVALUABLE EVENT
     Route: 065

REACTIONS (1)
  - HEPATITIS CHOLESTATIC [None]
